FAERS Safety Report 4815955-0 (Version None)
Quarter: 2005Q4

REPORT INFORMATION
  Report Type: 
  Country: None (occurrence: None)
  Receive Date: 20051026
  Receipt Date: 20051017
  Transmission Date: 20060501
  Serious: Yes (Hospitalization, Other)
  Sender: FDA-Public Use
  Company Number: 2005143642

PATIENT
  Sex: Female
  Weight: 112.9457 kg

DRUGS (9)
  1. ZOLOFT [Suspect]
     Indication: ANXIETY
     Dosage: 50 MG (50 MG, 1 IN 1 D), ORAL
     Route: 048
  2. ZOLOFT [Suspect]
     Indication: STRESS
     Dosage: 50 MG (50 MG, 1 IN 1 D), ORAL
     Route: 048
  3. COREG [Concomitant]
  4. PRAVACHOL [Concomitant]
  5. CENESTIN [Concomitant]
  6. ASPIRIN [Concomitant]
  7. ACTOS [Concomitant]
  8. METFORMIN HCL [Concomitant]
  9. ALL OTHER THERAPEUTIC PRODUCTS (ALL OTHER THERAPEUTIC PRODUCTS) [Concomitant]

REACTIONS (5)
  - ARTERIAL OCCLUSIVE DISEASE [None]
  - EMOTIONAL DISORDER [None]
  - INCISION SITE COMPLICATION [None]
  - MYOCARDIAL INFARCTION [None]
  - STRESS [None]
